FAERS Safety Report 6122706-9 (Version None)
Quarter: 2009Q1

REPORT INFORMATION
  Report Type: 
  Country: None (occurrence: None)
  Receive Date: 20090318
  Receipt Date: 20090312
  Transmission Date: 20090719
  Serious: Yes (Other)
  Sender: FDA-Public Use
  Company Number: US-ASTRAZENECA-2009UW06562

PATIENT
  Age: 25737 Day
  Sex: Female
  Weight: 63.5 kg

DRUGS (5)
  1. CRESTOR [Suspect]
     Route: 048
     Dates: start: 20090212
  2. SYNTHROID [Concomitant]
     Dosage: 0.125 MG
  3. DIAZIDE [Concomitant]
  4. DEMADEX [Concomitant]
  5. ACTONEL [Concomitant]

REACTIONS (1)
  - FACE OEDEMA [None]
